FAERS Safety Report 16739938 (Version 1)
Quarter: 2019Q3

REPORT INFORMATION
  Report Type: Report from Study
  Country: US (occurrence: US)
  Receive Date: 20190826
  Receipt Date: 20190826
  Transmission Date: 20191005
  Serious: Yes (Congenital Anomaly)
  Sender: FDA-Public Use
  Company Number: US-ROCHE-2390118

PATIENT

DRUGS (1)
  1. OSELTAMIVIR [Suspect]
     Active Substance: OSELTAMIVIR
     Indication: PRODUCT USED FOR UNKNOWN INDICATION
     Route: 064

REACTIONS (8)
  - Atrial septal defect [Unknown]
  - Dextrocardia [Unknown]
  - Intestinal malrotation [Unknown]
  - Foetal exposure during pregnancy [Unknown]
  - Persistent left superior vena cava [Unknown]
  - Heterotaxia [Unknown]
  - Teratoma [Unknown]
  - Right aortic arch [Unknown]
